FAERS Safety Report 19842013 (Version 2)
Quarter: 2021Q4

REPORT INFORMATION
  Report Type: Report from Study
  Country: US (occurrence: US)
  Receive Date: 20210916
  Receipt Date: 20211014
  Transmission Date: 20220303
  Serious: Yes (Other)
  Sender: FDA-Public Use
  Company Number: US-BAYER-2021-192736

PATIENT
  Age: 52 Year
  Sex: Female

DRUGS (6)
  1. STIVARGA [Suspect]
     Active Substance: REGORAFENIB
     Indication: Colorectal cancer metastatic
     Dosage: 160 MG, QD FOR 21 OUT OF 28 DAYS
     Route: 048
     Dates: start: 20210809
  2. STIVARGA [Suspect]
     Active Substance: REGORAFENIB
     Indication: Colorectal cancer metastatic
     Dosage: 160 MG, QD FOR 21 OUT OF 28 DAYS
     Route: 048
     Dates: start: 20210906
  3. STIVARGA [Suspect]
     Active Substance: REGORAFENIB
     Indication: Colorectal cancer metastatic
     Dosage: DAILY DOSE 120 MG FOR 21 DAYS ON AND 7 DAYS OFF
     Route: 048
     Dates: start: 20210923
  4. IBUPROFEN [Concomitant]
     Active Substance: IBUPROFEN
     Dosage: DAILY DOSE 800 MG
  5. AQUAPHOR (XIPAMIDE) [Concomitant]
     Active Substance: XIPAMIDE
     Dosage: UNK
  6. OXYQUINOLINE SULFATE [Concomitant]
     Active Substance: OXYQUINOLINE SULFATE
     Dosage: UNK

REACTIONS (18)
  - Impaired work ability [Not Recovered/Not Resolved]
  - Pain [Not Recovered/Not Resolved]
  - Blister [Not Recovered/Not Resolved]
  - Skin exfoliation [Not Recovered/Not Resolved]
  - Pain in extremity [Recovering/Resolving]
  - Feeling hot [Not Recovered/Not Resolved]
  - Hyperkeratosis [Not Recovered/Not Resolved]
  - Blood pressure diastolic increased [Not Recovered/Not Resolved]
  - Skin discomfort [Recovering/Resolving]
  - Fatigue [None]
  - Blister [Not Recovered/Not Resolved]
  - Gait disturbance [Not Recovered/Not Resolved]
  - Pain of skin [Unknown]
  - Dry skin [Unknown]
  - Skin tightness [Unknown]
  - Hyperkeratosis [Recovered/Resolved]
  - Burning sensation [Unknown]
  - Paraesthesia [Unknown]

NARRATIVE: CASE EVENT DATE: 20210801
